FAERS Safety Report 15739280 (Version 1)
Quarter: 2018Q4

REPORT INFORMATION
  Report Type: Spontaneous
  Country: US (occurrence: US)
  Receive Date: 20181219
  Receipt Date: 20181219
  Transmission Date: 20190205
  Serious: No
  Sender: FDA-Public Use
  Company Number: US-ALLERGAN-1827505US

PATIENT
  Age: 21 Year
  Sex: Female

DRUGS (3)
  1. LEXAPRO [Suspect]
     Active Substance: ESCITALOPRAM OXALATE
     Indication: ANXIETY
     Dosage: 5 MG, UNK
     Route: 048
     Dates: start: 20161101, end: 20161105
  2. LEXAPRO [Suspect]
     Active Substance: ESCITALOPRAM OXALATE
     Indication: DEPRESSION
     Dosage: 2.5 MG, UNK
     Route: 048
     Dates: start: 20161024, end: 20161101
  3. ATIVAN [Concomitant]
     Active Substance: LORAZEPAM
     Dosage: UNK, PRN
     Route: 048

REACTIONS (1)
  - Asthenia [Recovered/Resolved]

NARRATIVE: CASE EVENT DATE: 201610
